FAERS Safety Report 15861155 (Version 2)
Quarter: 2019Q4

REPORT INFORMATION
  Report Type: Spontaneous
  Country: CA (occurrence: CA)
  Receive Date: 20190124
  Receipt Date: 20191114
  Transmission Date: 20200122
  Serious: Yes (Hospitalization, Congenital Anomaly, Other)
  Sender: FDA-Public Use
  Company Number: CA-TEVA-2019-CA-1003014

PATIENT
  Age: 42 Year
  Sex: Female
  Weight: 63 kg

DRUGS (9)
  1. ARANESP [Suspect]
     Active Substance: DARBEPOETIN ALFA
     Route: 065
  2. ATIVAN [Concomitant]
     Active Substance: LORAZEPAM
     Indication: SLEEP DISORDER
     Route: 065
  3. ARANESP [Suspect]
     Active Substance: DARBEPOETIN ALFA
     Indication: PRODUCT USED FOR UNKNOWN INDICATION
     Route: 065
  4. ARANESP [Suspect]
     Active Substance: DARBEPOETIN ALFA
     Route: 065
  5. LORAZEPAM. [Concomitant]
     Active Substance: LORAZEPAM
     Route: 065
  6. SULFAMETHOXAZOLE AND TRIMETHOPRIM [Suspect]
     Active Substance: SULFAMETHOXAZOLE\TRIMETHOPRIM
     Indication: PROPHYLAXIS
     Route: 065
  7. IRON [Concomitant]
     Active Substance: IRON
     Route: 065
  8. PREDNISONE. [Suspect]
     Active Substance: PREDNISONE
     Indication: PRODUCT USED FOR UNKNOWN INDICATION
     Route: 065
  9. COLCHICINE. [Suspect]
     Active Substance: COLCHICINE
     Indication: GOUT
     Dosage: 1.2 MILLIGRAM DAILY;
     Route: 065

REACTIONS (15)
  - Platelet count increased [Unknown]
  - Transfusion [Unknown]
  - Amegakaryocytic thrombocytopenia [Unknown]
  - Bone marrow failure [Unknown]
  - Lymphoproliferative disorder [Unknown]
  - Macrocytosis [Unknown]
  - Hypophosphataemia [Unknown]
  - Refractory cytopenia with unilineage dysplasia [Unknown]
  - Renal transplant [Unknown]
  - Pancytopenia [Unknown]
  - Aplasia pure red cell [Unknown]
  - Haemodialysis [Unknown]
  - Anaemia [Unknown]
  - Macrophages increased [Unknown]
  - Natural killer cell count [Unknown]
